FAERS Safety Report 6133688-8 (Version None)
Quarter: 2009Q1

REPORT INFORMATION
  Report Type: 
  Country: None (occurrence: None)
  Receive Date: 20090326
  Receipt Date: 20090316
  Transmission Date: 20090719
  Serious: Yes (Hospitalization)
  Sender: FDA-Public Use
  Company Number: B0564446A

PATIENT
  Age: 68 Year
  Sex: Female
  Weight: 65 kg

DRUGS (10)
  1. LAPATINIB [Suspect]
     Indication: BREAST CANCER
     Dosage: 1500MG PER DAY
     Route: 048
     Dates: start: 20090226
  2. PIRACETAM [Concomitant]
     Dosage: 1200MG PER DAY
     Route: 048
     Dates: start: 19950413
  3. VINPOCETINE [Concomitant]
     Dosage: 30MG PER DAY
     Route: 048
     Dates: start: 20050413
  4. FOSINOPRIL [Concomitant]
     Indication: HYPERTENSION
     Dosage: 5MG PER DAY
     Route: 048
     Dates: start: 20041124
  5. ACETYLSALICYLIC ACID [Concomitant]
     Dosage: 100MG PER DAY
     Route: 048
     Dates: start: 19950901
  6. COVEREX [Concomitant]
  7. CAVINTON FORTE [Concomitant]
  8. NOOTROPIL [Concomitant]
  9. MAGNESIUM SULFATE [Concomitant]
  10. POTASSIUM CHLORIDE [Concomitant]

REACTIONS (10)
  - ABNORMAL BEHAVIOUR [None]
  - BLOOD MAGNESIUM DECREASED [None]
  - HEADACHE [None]
  - HEPATIC ENZYME INCREASED [None]
  - HYPERBILIRUBINAEMIA [None]
  - HYPOALBUMINAEMIA [None]
  - HYPOCALCAEMIA [None]
  - HYPOKALAEMIA [None]
  - SOMNOLENCE [None]
  - VOMITING [None]
